FAERS Safety Report 12634269 (Version 1)
Quarter: 2016Q3

REPORT INFORMATION
  Report Type: Spontaneous
  Country: IT (occurrence: IT)
  Receive Date: 20160808
  Receipt Date: 20160808
  Transmission Date: 20161109
  Serious: Yes (Other)
  Sender: FDA-Public Use
  Company Number: IT-PFIZER INC-2016377877

PATIENT
  Age: 61 Year
  Sex: Male

DRUGS (5)
  1. DOXYCYCLINE HYCLATE. [Suspect]
     Active Substance: DOXYCYCLINE HYCLATE
     Indication: EYE INFECTION SYPHILITIC
     Dosage: 1 DF, UNK
  2. CEFTRIAXONE SODIUM. [Suspect]
     Active Substance: CEFTRIAXONE SODIUM
     Indication: EYE INFECTION SYPHILITIC
     Dosage: 1 DF, UNK
  3. BENZATHINE PENICILLIN [Concomitant]
     Indication: EYE INFECTION SYPHILITIC
     Dosage: FOUR DOSES OF 2.4 MU EACH AT 1-WEEK INTERVAL
     Route: 030
  4. METHYLPREDNISOLONE. [Concomitant]
     Active Substance: METHYLPREDNISOLONE
     Dosage: UNK
     Route: 042
  5. INSULIN [Concomitant]
     Active Substance: INSULIN NOS
     Indication: TYPE 1 DIABETES MELLITUS
     Dosage: 96-IU BASAL-BOLUS REGIMEN

REACTIONS (1)
  - Jarisch-Herxheimer reaction [Unknown]
